FAERS Safety Report 4592640-4 (Version None)
Quarter: 2005Q1

REPORT INFORMATION
  Report Type: 
  Country: None (occurrence: None)
  Receive Date: 20050228
  Receipt Date: 20050215
  Transmission Date: 20050727
  Serious: Yes (Life-Threatening, Hospitalization)
  Sender: FDA-Public Use
  Company Number: DE-JNJFOC-20050102811

PATIENT
  Sex: Female

DRUGS (5)
  1. IMODIUM [Suspect]
     Indication: DIARRHOEA
     Dosage: 2-5 CAPSULES A DAY
     Route: 049
  2. NIMODIPIN [Concomitant]
     Indication: CARDIAC FAILURE
     Route: 049
  3. RYTMONORM [Concomitant]
  4. LOCOL [Concomitant]
  5. ASPIRIN [Concomitant]

REACTIONS (3)
  - DYSPHAGIA [None]
  - HELICOBACTER INFECTION [None]
  - TONGUE ULCERATION [None]
